FAERS Safety Report 17608635 (Version 1)
Quarter: 2020Q2

REPORT INFORMATION
  Report Type: Spontaneous
  Country: US (occurrence: US)
  Receive Date: 20200401
  Receipt Date: 20200401
  Transmission Date: 20200713
  Serious: Yes (Hospitalization, Other)
  Sender: FDA-Public Use
  Company Number: US-FERRINGPH-2020FE01953

PATIENT
  Age: 25 Year
  Sex: Female

DRUGS (5)
  1. OVIDREL [Suspect]
     Active Substance: CHORIOGONADOTROPIN ALFA
     Indication: OVULATION INDUCTION
     Route: 065
  2. FEMARA [Suspect]
     Active Substance: LETROZOLE
     Indication: ANTIOESTROGEN THERAPY
     Dosage: 2.5 MG, 2 TIMES DAILY
     Route: 065
  3. MENOPUR [Suspect]
     Active Substance: FOLLITROPIN\LUTEINIZING HORMONE
     Indication: OVULATION INDUCTION
     Dosage: UNK
     Route: 065
  4. FSH [Suspect]
     Active Substance: FOLLITROPIN
     Indication: OVULATION INDUCTION
     Dosage: UNK
     Route: 065
  5. GANIRELIX [Suspect]
     Active Substance: GANIRELIX
     Indication: OVULATION INDUCTION
     Dosage: UNK
     Route: 065

REACTIONS (1)
  - Vaginal cuff dehiscence [Recovered/Resolved]
